FAERS Safety Report 5933715-4 (Version None)
Quarter: 2008Q4

REPORT INFORMATION
  Report Type: 
  Country: None (occurrence: None)
  Receive Date: 20081029
  Receipt Date: 20081024
  Transmission Date: 20090506
  Serious: Yes (Hospitalization)
  Sender: FDA-Public Use
  Company Number: FR-BRISTOL-MYERS SQUIBB COMPANY-14383012

PATIENT
  Age: 65 Year
  Sex: Male

DRUGS (9)
  1. VIDEX [Suspect]
     Dates: start: 20050901, end: 20080701
  2. TRUVADA [Suspect]
     Indication: HEPATITIS B VIRUS TEST
     Route: 048
     Dates: start: 20080708, end: 20080801
  3. HEPSERA [Suspect]
     Dosage: 10MG 1IN1D FRM MAY04-SEP07 5MG 1IN2D FRM SEP07-MAR08(6MONTHS) MAR-08 TO JUL-08
     Dates: start: 20040501, end: 20080701
  4. ZEFFIX [Suspect]
     Indication: HEPATITIS B VIRUS TEST
     Dosage: 100MG 1IN1D FRM APR06-SEP07 (1YR) 50MG 1IN1D FRM SEP07-MAR08(6MONTHS)
     Dates: start: 20080301, end: 20080701
  5. SUSTIVA [Concomitant]
     Indication: ANTIRETROVIRAL THERAPY
     Dates: start: 20050901
  6. REYATAZ [Concomitant]
     Indication: ANTIRETROVIRAL THERAPY
     Dates: start: 20050901
  7. NORVIR [Concomitant]
     Indication: ANTIRETROVIRAL THERAPY
     Dates: start: 20050901
  8. NORSET [Concomitant]
     Dates: end: 20080801
  9. CRESTOR [Concomitant]
     Dates: end: 20080801

REACTIONS (2)
  - CYTOLYTIC HEPATITIS [None]
  - RENAL FAILURE [None]
